FAERS Safety Report 9937322 (Version 4)
Quarter: 2014Q2

REPORT INFORMATION
  Report Type: Spontaneous
  Country: HU (occurrence: HU)
  Receive Date: 20140302
  Receipt Date: 20140416
  Transmission Date: 20141212
  Serious: Yes (Hospitalization)
  Sender: FDA-Public Use
  Company Number: HU-009507513-1402HUN009218

PATIENT
  Age: 19 Year
  Sex: Male
  Weight: 55 kg

DRUGS (4)
  1. REBETOL [Suspect]
     Indication: RESPIRATORY SYNCYTIAL VIRUS INFECTION
     Dosage: 600 MG, TID
     Route: 048
     Dates: start: 20120224, end: 20120314
  2. GLOBULIN, IMMUNE [Concomitant]
     Indication: HYPOGAMMAGLOBULINAEMIA
     Dosage: STRENGTH 0.5 G/BWKG, WEEKLY
     Route: 042
     Dates: start: 20120223, end: 20120307
  3. GANCICLOVIR [Concomitant]
     Indication: CYTOMEGALOVIRUS INFECTION
     Dosage: 300 MG, BID
     Route: 042
     Dates: start: 20120418, end: 20120506
  4. COLISTIN [Concomitant]
     Indication: BACTERIAL SEPSIS
     Dosage: 2 MILLION U, TID
     Dates: start: 20120220, end: 20120506

REACTIONS (2)
  - Haemolysis [Recovered/Resolved]
  - Off label use [Unknown]
